FAERS Safety Report 10519973 (Version 1)
Quarter: 2014Q4

REPORT INFORMATION
  Report Type: Report from Study
  Country: US (occurrence: US)
  Receive Date: 20141015
  Receipt Date: 20141015
  Transmission Date: 20150528
  Serious: Yes (Death, Hospitalization)
  Sender: FDA-Public Use
  Company Number: US-TEVA-515324USA

PATIENT
  Age: 79 Year
  Sex: Female

DRUGS (1)
  1. CLOZAPINE. [Suspect]
     Active Substance: CLOZAPINE
     Indication: PARKINSON^S DISEASE
     Route: 048

REACTIONS (4)
  - Death [Fatal]
  - Pneumonia [Unknown]
  - Sepsis [Unknown]
  - Product use issue [Unknown]

NARRATIVE: CASE EVENT DATE: 20141007
